FAERS Safety Report 8764124 (Version 1)
Quarter: 2012Q4

REPORT INFORMATION
  Report Type: 
  Country: JP (occurrence: JP)
  Receive Date: 20120831
  Receipt Date: 20120831
  Transmission Date: 20130627
  Serious: Yes (Other)
  Sender: FDA-Public Use
  Company Number: JP-009507513-1208JPN010455

PATIENT

DRUGS (3)
  1. FOSAMAC TABLETS 35MG [Suspect]
     Dosage: 35 mg, qw
     Route: 048
  2. NEORAL [Concomitant]
     Dosage: Daily dose unknown
     Route: 065
  3. HORMONES (UNSPECIFIED) [Concomitant]
     Dosage: Daily dose unknown
     Route: 065

REACTIONS (1)
  - Atypical femur fracture [Unknown]
